FAERS Safety Report 8359637-X (Version None)
Quarter: 2012Q1

REPORT INFORMATION
  Report Type: 
  Country: None (occurrence: None)
  Receive Date: 20120315
  Receipt Date: 20110524
  Transmission Date: 20120608
  Serious: Yes (Other)
  Sender: FDA-Public Use
  Company Number: PHHY2011US42318

PATIENT
  Age: 29 Year
  Sex: Female

DRUGS (1)
  1. GILENYA [Suspect]
     Dosage: ORAL
     Route: 048
     Dates: start: 20101001

REACTIONS (1)
  - MULTIPLE SCLEROSIS RELAPSE [None]
